FAERS Safety Report 4698421-5 (Version None)
Quarter: 2005Q2

REPORT INFORMATION
  Report Type: 
  Country: None (occurrence: None)
  Receive Date: 20050621
  Receipt Date: 20050606
  Transmission Date: 20051028
  Serious: Yes (Hospitalization)
  Sender: FDA-Public Use
  Company Number: EWC050544115

PATIENT
  Age: 67 Year
  Sex: Female

DRUGS (7)
  1. FORTEO [Suspect]
     Indication: OSTEOPOROSIS
  2. IBUPROFEN [Concomitant]
  3. FISH OIL [Concomitant]
  4. CENTYL (BENDROFLUMETHIAZIDE) [Concomitant]
  5. REMICADE [Concomitant]
  6. METHOTREXAT (METHOTREXATE 00113801/) [Concomitant]
  7. TREVINA [Concomitant]

REACTIONS (3)
  - CEREBROVASCULAR ACCIDENT [None]
  - PHLEBOTHROMBOSIS [None]
  - SOMNOLENCE [None]
